FAERS Safety Report 25527243 (Version 2)
Quarter: 2025Q3

REPORT INFORMATION
  Report Type: Report from Study
  Country: EG (occurrence: EG)
  Receive Date: 20250708
  Receipt Date: 20250829
  Transmission Date: 20251020
  Serious: Yes (Life-Threatening)
  Sender: ROCHE
  Company Number: EG-ROCHE-10000331548

PATIENT
  Age: 37 Year
  Weight: 100 kg

DRUGS (1)
  1. HERCEPTIN [Suspect]
     Active Substance: TRASTUZUMAB
     Indication: Breast cancer
     Route: 058
     Dates: start: 20250101, end: 20250403

REACTIONS (1)
  - Disease progression [Unknown]

NARRATIVE: CASE EVENT DATE: 20250424
